FAERS Safety Report 10409935 (Version 1)
Quarter: 2014Q3

REPORT INFORMATION
  Report Type: Spontaneous
  Country: US (occurrence: None)
  Receive Date: 20140822
  Receipt Date: 20140822
  Transmission Date: 20150326
  Serious: Yes (Hospitalization)
  Sender: FDA-Public Use
  Company Number: 2014080041

PATIENT
  Age: 69 Year
  Sex: Female

DRUGS (3)
  1. MEPERIDINE [Suspect]
     Active Substance: MEPERIDINE
     Indication: PROCEDURAL PAIN
  2. PACLITAXEL. [Suspect]
     Active Substance: PACLITAXEL
     Indication: DEPRESSION
  3. FENTANYL (FENTANYL) [Suspect]
     Active Substance: FENTANYL
     Indication: PROCEDURAL PAIN

REACTIONS (4)
  - Pressure of speech [None]
  - Serotonin syndrome [None]
  - Hyporesponsive to stimuli [None]
  - Hypertension [None]
